FAERS Safety Report 20092448 (Version 1)
Quarter: 2021Q4

REPORT INFORMATION
  Report Type: Spontaneous
  Country: ES (occurrence: ES)
  Receive Date: 20211119
  Receipt Date: 20211119
  Transmission Date: 20220303
  Serious: Yes (Other)
  Sender: FDA-Public Use
  Company Number: ES-INSUD PHARMA-2111ES02781

PATIENT

DRUGS (3)
  1. NUVESSA [Interacting]
     Active Substance: METRONIDAZOLE
     Indication: Brain abscess
     Dosage: 10 MG/KG EVERY 8 HOURS
     Route: 042
  2. FLUCONAZOLE [Interacting]
     Active Substance: FLUCONAZOLE
     Indication: Urinary tract candidiasis
     Dosage: UNKNOWN
     Route: 042
  3. CEFTRIAXONE [Concomitant]
     Active Substance: CEFTRIAXONE
     Indication: Brain abscess
     Dosage: 2 G EVERY 12 HOURS
     Route: 042

REACTIONS (5)
  - Cerebellar syndrome [Recovered/Resolved]
  - Toxicity to various agents [Recovered/Resolved]
  - Dysarthria [Recovered/Resolved]
  - Ataxia [Recovered/Resolved]
  - Drug interaction [Unknown]
